FAERS Safety Report 18849398 (Version 1)
Quarter: 2021Q1

REPORT INFORMATION
  Report Type: Spontaneous
  Country: FR (occurrence: FR)
  Receive Date: 20210205
  Receipt Date: 20210205
  Transmission Date: 20210419
  Serious: Yes (Hospitalization)
  Sender: FDA-Public Use
  Company Number: FR-SUN PHARMACEUTICAL INDUSTRIES LTD-2021RR-279162

PATIENT
  Age: 73 Year
  Sex: Male

DRUGS (1)
  1. ESOMEPRAZOLE SUN [Suspect]
     Active Substance: ESOMEPRAZOLE SODIUM
     Indication: GASTRIC ULCER
     Dosage: 8 MILLIGRAM
     Route: 042
     Dates: start: 20210101, end: 20210104

REACTIONS (1)
  - Infusion site inflammation [Not Recovered/Not Resolved]

NARRATIVE: CASE EVENT DATE: 20210102
